FAERS Safety Report 20787912 (Version 2)
Quarter: 2022Q2

REPORT INFORMATION
  Report Type: Spontaneous
  Country: FR (occurrence: FR)
  Receive Date: 20220505
  Receipt Date: 20220527
  Transmission Date: 20220721
  Serious: Yes (Hospitalization)
  Sender: FDA-Public Use
  Company Number: None

PATIENT
  Age: 79 Year
  Sex: Male
  Weight: 83 kg

DRUGS (8)
  1. PAXLOVID [Interacting]
     Active Substance: NIRMATRELVIR\RITONAVIR
     Indication: COVID-19
     Dosage: (2 CP 150 MG NIRMETRALVIR + 1 CP 100 MG RITONAVIR) 2 FOIS PAR JOUR
     Route: 048
     Dates: start: 20220422, end: 20220426
  2. PAXLOVID [Suspect]
     Active Substance: NIRMATRELVIR\RITONAVIR
     Indication: COVID-19
     Dosage: (2 CP 150 MG NIRMETRALVIR + 1 CP 100 MG RITONAVIR) 2 FOIS PAR JOUR
     Route: 048
     Dates: start: 20220422, end: 20220426
  3. XARELTO [Interacting]
     Active Substance: RIVAROXABAN
     Indication: Atrial fibrillation
     Route: 048
     Dates: end: 20220426
  4. FINASTERIDE [Concomitant]
     Active Substance: FINASTERIDE
     Indication: Product used for unknown indication
  5. NEBIVOLOL [Concomitant]
     Active Substance: NEBIVOLOL
     Indication: Product used for unknown indication
  6. LOXEN [Concomitant]
     Indication: Product used for unknown indication
  7. IRBESARTAN [Concomitant]
     Active Substance: IRBESARTAN
     Indication: Product used for unknown indication
  8. ALFUZOSIN [Concomitant]
     Active Substance: ALFUZOSIN
     Indication: Product used for unknown indication

REACTIONS (5)
  - Accidental overdose [Recovering/Resolving]
  - Anticoagulation drug level above therapeutic [Recovering/Resolving]
  - Product prescribing error [Recovered/Resolved]
  - Labelled drug-drug interaction medication error [Recovered/Resolved]
  - Melaena [Recovering/Resolving]

NARRATIVE: CASE EVENT DATE: 20220426
